FAERS Safety Report 9178426 (Version 2)
Quarter: 2013Q2

REPORT INFORMATION
  Report Type: Spontaneous
  Country: CZ (occurrence: CZ)
  Receive Date: 20130321
  Receipt Date: 20130605
  Transmission Date: 20140414
  Serious: Yes (Other)
  Sender: FDA-Public Use
  Company Number: CZ-BRISTOL-MYERS SQUIBB COMPANY-17472127

PATIENT
  Age: 34 Year
  Sex: Female
  Weight: 74 kg

DRUGS (1)
  1. ABILIFY [Suspect]
     Indication: SCHIZOAFFECTIVE DISORDER
     Dosage: INTERR:5FEB13
     Route: 048
     Dates: start: 201207

REACTIONS (5)
  - Abortion induced [Unknown]
  - Vaginal haemorrhage [Unknown]
  - Twin pregnancy [Recovered/Resolved]
  - Nausea [Unknown]
  - Tonsillitis [Unknown]
